FAERS Safety Report 8048585-0 (Version None)
Quarter: 2011Q4

REPORT INFORMATION
  Report Type: 
  Country: None (occurrence: None)
  Receive Date: 20111209
  Receipt Date: 20111007
  Transmission Date: 20120403
  Serious: No
  Sender: FDA-Public Use
  Company Number: 2011SP047700

PATIENT
  Age: 57 Year
  Sex: Female

DRUGS (3)
  1. PEGASYS [Suspect]
     Indication: HEPATITIS C
     Dates: start: 20110930
  2. RIBAVIRIN [Suspect]
     Indication: HEPATITIS C
     Dates: start: 20110930
  3. VICTRELIS [Suspect]
     Indication: HEPATITIS C
     Dates: start: 20110930

REACTIONS (4)
  - CHEST PAIN [None]
  - NAUSEA [None]
  - FATIGUE [None]
  - DYSGEUSIA [None]
